FAERS Safety Report 5272747-9 (Version None)
Quarter: 2007Q1

REPORT INFORMATION
  Report Type: 
  Country: None (occurrence: None)
  Receive Date: 20070322
  Receipt Date: 20070319
  Transmission Date: 20070707
  Serious: Yes (Other)
  Sender: FDA-Public Use
  Company Number: US-GLAXOSMITHKLINE-A0643677A

PATIENT
  Age: 30 Year
  Sex: Male

DRUGS (4)
  1. ADVAIR DISKUS 100/50 [Suspect]
     Indication: ASTHMA
     Route: 055
     Dates: start: 20050401, end: 20061201
  2. ANTIBIOTIC [Concomitant]
  3. ALBUTEROL [Concomitant]
  4. ALLEGRA D 24 HOUR [Concomitant]

REACTIONS (3)
  - DECREASED IMMUNE RESPONSIVENESS [None]
  - DRUG DEPENDENCE [None]
  - RESPIRATORY TRACT INFECTION [None]
